FAERS Safety Report 24404166 (Version 1)
Quarter: 2024Q4

REPORT INFORMATION
  Report Type: Spontaneous
  Country: BE (occurrence: BE)
  Receive Date: 20241007
  Receipt Date: 20241007
  Transmission Date: 20250114
  Serious: Yes (Disabling, Other)
  Sender: ACCORD
  Company Number: BE-MLMSERVICE-20240923-PI196047-00077-2

PATIENT
  Age: 71 Year
  Sex: Female

DRUGS (5)
  1. CAPECITABINE [Suspect]
     Active Substance: CAPECITABINE
     Indication: Invasive ductal breast carcinoma
     Dosage: RESTARTED AT LOWER DOSE, DOSE 1000 MG/M2 BID, GIVEN FOR 14 DAYS ON A 21-DAY CYCLE FOR 4 CYCLES
  2. CAPECITABINE [Suspect]
     Active Substance: CAPECITABINE
     Indication: Hormone receptor positive breast cancer
     Dosage: RESTARTED AT LOWER DOSE, DOSE 1000 MG/M2 BID, GIVEN FOR 14 DAYS ON A 21-DAY CYCLE FOR 4 CYCLES
  3. CAPECITABINE [Suspect]
     Active Substance: CAPECITABINE
     Indication: Hormone receptor positive breast cancer
     Dosage: RESTARTED AT LOWER DOSE, DOSE 1000 MG/M2 BID, GIVEN FOR 14 DAYS ON A 21-DAY CYCLE FOR 4 CYCLES
  4. CAPECITABINE [Suspect]
     Active Substance: CAPECITABINE
     Indication: Malignant neoplasm progression
     Dosage: RESTARTED AT LOWER DOSE, DOSE 1000 MG/M2 BID, GIVEN FOR 14 DAYS ON A 21-DAY CYCLE FOR 4 CYCLES
  5. CAPECITABINE [Suspect]
     Active Substance: CAPECITABINE
     Indication: Metastases to liver
     Dosage: RESTARTED AT LOWER DOSE, DOSE 1000 MG/M2 BID, GIVEN FOR 14 DAYS ON A 21-DAY CYCLE FOR 4 CYCLES

REACTIONS (5)
  - Corneal disorder [Recovering/Resolving]
  - Keratitis [Recovering/Resolving]
  - Cataract [Recovering/Resolving]
  - Fibrosis [Recovering/Resolving]
  - Visual acuity reduced [Recovering/Resolving]
